FAERS Safety Report 12424913 (Version 3)
Quarter: 2016Q3

REPORT INFORMATION
  Report Type: Spontaneous
  Country: DE (occurrence: DE)
  Receive Date: 20160601
  Receipt Date: 20160727
  Transmission Date: 20161109
  Serious: Yes (Hospitalization, Other)
  Sender: FDA-Public Use
  Company Number: DE-PFIZER INC-2016276066

PATIENT
  Age: 45 Year
  Sex: Female
  Weight: 70 kg

DRUGS (7)
  1. PREGABALIN. [Suspect]
     Active Substance: PREGABALIN
     Indication: SUICIDAL IDEATION
  2. HYPNOREX [Concomitant]
     Active Substance: LITHIUM CARBONATE
     Indication: DEPRESSION
     Dosage: 400-0-200
     Route: 048
     Dates: start: 2013
  3. TRANYLCYPROMIN [Concomitant]
     Indication: DEPRESSION
     Dosage: 40-0-0
     Route: 048
     Dates: start: 201510
  4. PREGABALIN. [Suspect]
     Active Substance: PREGABALIN
     Indication: SEDATION
     Dosage: REDUCED GRADUALLY (25 MG)
     Route: 048
     Dates: end: 201602
  5. PREGABALIN. [Suspect]
     Active Substance: PREGABALIN
     Indication: RESTLESSNESS
  6. PREGABALIN. [Suspect]
     Active Substance: PREGABALIN
     Indication: DEPRESSION
     Dosage: 50-0-150, INCREASED UP TO 200 MG
     Route: 048
     Dates: start: 201510
  7. PREGABALIN. [Suspect]
     Active Substance: PREGABALIN
     Indication: ANXIETY

REACTIONS (15)
  - Withdrawal syndrome [Recovered/Resolved]
  - Dizziness [Recovered/Resolved]
  - Face oedema [Recovered/Resolved]
  - Cerebellar syndrome [Recovered/Resolved]
  - Movement disorder [Recovered/Resolved]
  - Oedema peripheral [Recovered/Resolved]
  - Tremor [Unknown]
  - Drug dependence [Recovered/Resolved]
  - Chills [Recovered/Resolved]
  - Headache [Recovered/Resolved]
  - Arthralgia [Recovered/Resolved]
  - Cogwheel rigidity [Recovered/Resolved]
  - Pain in extremity [Recovered/Resolved]
  - Myalgia [Unknown]
  - Sensory disturbance [Recovered/Resolved]

NARRATIVE: CASE EVENT DATE: 201512
